FAERS Safety Report 14427607 (Version 2)
Quarter: 2021Q4

REPORT INFORMATION
  Report Type: Spontaneous
  Country: CN (occurrence: CN)
  Receive Date: 20180123
  Receipt Date: 20211019
  Transmission Date: 20220304
  Serious: Yes (Hospitalization, Other)
  Sender: FDA-Public Use
  Company Number: CN-ALLERGAN-1803250US

PATIENT
  Sex: Female

DRUGS (3)
  1. PRED FORTE [Suspect]
     Active Substance: PREDNISOLONE ACETATE
     Indication: Glaucomatocyclitic crises
     Dosage: UNK
     Route: 047
  2. BROMFENAC SODIUM [Concomitant]
     Active Substance: BROMFENAC SODIUM
  3. CARTEOLOL HYDROCHLORIDE [Concomitant]
     Active Substance: CARTEOLOL HYDROCHLORIDE

REACTIONS (5)
  - Apoptosis [Unknown]
  - Eyelid ptosis [Recovered/Resolved]
  - Muscular weakness [Unknown]
  - Cataract [Unknown]
  - Off label use [Unknown]
